FAERS Safety Report 13531081 (Version 1)
Quarter: 2017Q2

REPORT INFORMATION
  Report Type: Spontaneous
  Country: US (occurrence: US)
  Receive Date: 20170509
  Receipt Date: 20170509
  Transmission Date: 20170830
  Serious: Yes (Other)
  Sender: FDA-Public Use
  Company Number: None

PATIENT
  Age: 61 Year
  Sex: Female

DRUGS (1)
  1. PROLIA [Suspect]
     Active Substance: DENOSUMAB
     Indication: SENILE OSTEOPOROSIS
     Dosage: 60MG/ML Q 6 MONTHS SUB Q INJECTION
     Route: 058

REACTIONS (2)
  - Myalgia [None]
  - Rash [None]

NARRATIVE: CASE EVENT DATE: 20170508
